FAERS Safety Report 10018479 (Version 1)
Quarter: 2014Q1

REPORT INFORMATION
  Report Type: Spontaneous
  Country: US (occurrence: None)
  Receive Date: 20140314
  Receipt Date: 20140314
  Transmission Date: 20141002
  Serious: Yes (Other)
  Sender: FDA-Public Use
  Company Number: None

PATIENT
  Age: 28 Year
  Sex: 0

DRUGS (1)
  1. FLOMAX [Suspect]

REACTIONS (2)
  - Nasal congestion [None]
  - Insomnia [None]
